FAERS Safety Report 7316538-3 (Version None)
Quarter: 2011Q1

REPORT INFORMATION
  Report Type: 
  Country: None (occurrence: None)
  Receive Date: 20110226
  Receipt Date: 20100708
  Transmission Date: 20110831
  Serious: No
  Sender: FDA-Public Use
  Company Number: US-ALLERGAN-1008892US

PATIENT
  Age: 33 Year
  Sex: Female

DRUGS (2)
  1. BOTOX COSMETIC [Suspect]
     Indication: EYELID PTOSIS
     Dosage: 16 UNITS, SINGLE
     Route: 030
     Dates: start: 20100626, end: 20100626
  2. BOTOX COSMETIC [Suspect]
     Dosage: UNK
     Route: 030
     Dates: start: 20100628, end: 20100628

REACTIONS (4)
  - DIPLOPIA [None]
  - DIZZINESS [None]
  - FACIAL PARESIS [None]
  - EYELID PTOSIS [None]
